FAERS Safety Report 9178650 (Version 1)
Quarter: 2012Q4

REPORT INFORMATION
  Report Type: Report from Study
  Country: ES (occurrence: ES)
  Receive Date: 20121029
  Receipt Date: 20121029
  Transmission Date: 20130627
  Serious: Yes (Other)
  Sender: FDA-Public Use
  Company Number: ES-JNJFOC-20121013663

PATIENT

DRUGS (1)
  1. USTEKINUMAB [Suspect]
     Indication: PSORIASIS
     Route: 058

REACTIONS (13)
  - Arthralgia [Unknown]
  - Arthritis [Unknown]
  - Guttate psoriasis [Unknown]
  - Hepatic steatosis [Unknown]
  - Urinary tract infection [Unknown]
  - Respiratory tract infection [Unknown]
  - Asthenia [Unknown]
  - Urticaria [Unknown]
  - Headache [Unknown]
  - Drug ineffective [Unknown]
  - Drug ineffective for unapproved indication [Unknown]
  - Migraine [Unknown]
  - Inappropriate schedule of drug administration [Unknown]
